FAERS Safety Report 8807778 (Version 1)
Quarter: 2012Q4

REPORT INFORMATION
  Report Type: 
  Country: CZ (occurrence: CZ)
  Receive Date: 20120925
  Receipt Date: 20120925
  Transmission Date: 20130627
  Serious: Yes (Other)
  Sender: FDA-Public Use
  Company Number: CZ-ROCHE-1135026

PATIENT

DRUGS (12)
  1. AVASTIN [Suspect]
     Indication: NEOPLASM
     Route: 042
  2. ROACCUTANE [Suspect]
     Indication: NEOPLASM
     Route: 048
  3. CELECOXIB [Suspect]
     Indication: NEOPLASM
     Route: 048
  4. CELECOXIB [Suspect]
     Route: 048
  5. TEMOZOLOMIDE [Suspect]
     Indication: NEOPLASM
     Route: 048
  6. TEMOZOLOMIDE [Suspect]
     Route: 048
  7. ETOPOSIDE [Suspect]
     Indication: NEOPLASM
     Route: 048
  8. FENOFIBRATE [Suspect]
     Indication: NEOPLASM
     Route: 048
  9. CHOLECALCIFEROL [Suspect]
     Indication: NEOPLASM
     Dosage: 300 kU/m2 on day 1
     Route: 048
  10. CHOLECALCIFEROL [Suspect]
     Dosage: 15000 U/m2
     Route: 048
  11. VINORELBINE [Suspect]
     Indication: NEOPLASM
     Route: 048
  12. CYCLOPHOSPHAMIDE [Suspect]
     Indication: NEOPLASM
     Route: 048

REACTIONS (4)
  - Hepatotoxicity [Unknown]
  - Cheilitis [Unknown]
  - Hypertriglyceridaemia [Unknown]
  - Febrile neutropenia [Unknown]
